FAERS Safety Report 25051823 (Version 5)
Quarter: 2025Q4

REPORT INFORMATION
  Report Type: Report from Study
  Country: US (occurrence: US)
  Receive Date: 20250307
  Receipt Date: 20251031
  Transmission Date: 20260118
  Serious: Yes (Other)
  Sender: ABBVIE
  Company Number: US-ABBVIE-6161089

PATIENT
  Age: 71 Year
  Sex: Female

DRUGS (1)
  1. SKYRIZI [Suspect]
     Active Substance: RISANKIZUMAB-RZAA
     Indication: Psoriasis
     Route: 058
     Dates: start: 2022

REACTIONS (6)
  - Knee arthroplasty [Unknown]
  - Pruritus [Recovered/Resolved]
  - Psoriasis [Not Recovered/Not Resolved]
  - Knee operation [Recovered/Resolved]
  - Impaired driving ability [Unknown]
  - Illness [Unknown]

NARRATIVE: CASE EVENT DATE: 20240101
